FAERS Safety Report 10614795 (Version 1)
Quarter: 2014Q4

REPORT INFORMATION
  Report Type: Spontaneous
  Country: DE (occurrence: DE)
  Receive Date: 20141201
  Receipt Date: 20141201
  Transmission Date: 20150529
  Serious: Yes (Other)
  Sender: FDA-Public Use
  Company Number: DE-CIPLA LTD.-2014DE02219

PATIENT
  Age: 75 Year

DRUGS (5)
  1. PACLITAXEL. [Suspect]
     Active Substance: PACLITAXEL
     Dosage: 150 MG/M2 ON DAYS 1, 8 AND 15 OF A 28 DAY CYCLE
  2. GEMCITABINE [Suspect]
     Active Substance: GEMCITABINE\GEMCITABINE HYDROCHLORIDE
     Indication: METASTASES TO LIVER
     Dosage: 1000 MG/M2 GEMCITABINE ON DAYS 1, 8 AND 15 OF A 28 DAY CYCLE
  3. GEMCITABINE [Suspect]
     Active Substance: GEMCITABINE\GEMCITABINE HYDROCHLORIDE
     Dosage: 800 MG/M2 DAY 8 OF CYCLE 3, CYCLE 4 AND CYCLE 7; DAY 15 OF CYCLE 5, CYCLE 6 AND CYCLE 7
  4. PACLITAXEL. [Suspect]
     Active Substance: PACLITAXEL
     Dosage: 100 MG/M2 ON DAY 1 OF CYCLE 1; DAY 8 OF CYCLE 3 ,4 AND 7; DAY 15 OF CYCLE 2,5,6,7
  5. PACLITAXEL. [Suspect]
     Active Substance: PACLITAXEL
     Indication: METASTASES TO LIVER
     Dosage: FIRST DOSE: 100 MG/M2

REACTIONS (10)
  - Neutropenia [Unknown]
  - Disease progression [Unknown]
  - Polyneuropathy [Unknown]
  - Infection [Unknown]
  - Alopecia [Unknown]
  - Blood bilirubin increased [Unknown]
  - Cholangitis [Unknown]
  - Pyrexia [Unknown]
  - Thrombocytopenia [Unknown]
  - Paronychia [Unknown]
